FAERS Safety Report 12432314 (Version 1)
Quarter: 2016Q2

REPORT INFORMATION
  Report Type: Spontaneous
  Country: US (occurrence: None)
  Receive Date: 20160602
  Receipt Date: 20160602
  Transmission Date: 20160815
  Serious: Yes (Hospitalization)
  Sender: FDA-Public Use
  Company Number: None

PATIENT
  Age: 73 Year
  Sex: Male
  Weight: 110 kg

DRUGS (15)
  1. DIGOXIN. [Concomitant]
     Active Substance: DIGOXIN
  2. RESTORIL [Suspect]
     Active Substance: TEMAZEPAM
  3. APIXABAN [Suspect]
     Active Substance: APIXABAN
     Indication: ATRIAL FIBRILLATION
     Route: 048
     Dates: start: 20111106, end: 20160224
  4. ACETAMINOPHEN-CODEINE [Concomitant]
     Active Substance: ACETAMINOPHEN\CODEINE PHOSPHATE
  5. POTASSIUM GLUCONATE [Concomitant]
     Active Substance: POTASSIUM GLUCONATE
  6. LOSARTAN. [Concomitant]
     Active Substance: LOSARTAN
  7. ZOLOFT [Concomitant]
     Active Substance: SERTRALINE HYDROCHLORIDE
  8. TIKOSYN [Concomitant]
     Active Substance: DOFETILIDE
  9. COLACE [Concomitant]
     Active Substance: DOCUSATE SODIUM
  10. LEVOTHYROXINE. [Concomitant]
     Active Substance: LEVOTHYROXINE
  11. BUMEX [Concomitant]
     Active Substance: BUMETANIDE
  12. CARVEDILOL. [Concomitant]
     Active Substance: CARVEDILOL
  13. MULTIVITAMIN [Concomitant]
     Active Substance: VITAMINS
  14. PRAVASTATIN [Concomitant]
     Active Substance: PRAVASTATIN\PRAVASTATIN SODIUM
  15. NYSTATIN. [Concomitant]
     Active Substance: NYSTATIN

REACTIONS (8)
  - Dyspnoea [None]
  - Hypotension [None]
  - Fall [None]
  - Pulmonary mass [None]
  - Chest pain [None]
  - Rhabdomyolysis [None]
  - Back pain [None]
  - Acute kidney injury [None]

NARRATIVE: CASE EVENT DATE: 20151202
